FAERS Safety Report 9448482 (Version 2)
Quarter: 2013Q3

REPORT INFORMATION
  Report Type: Spontaneous
  Country: US (occurrence: US)
  Receive Date: 20130808
  Receipt Date: 20130913
  Transmission Date: 20140515
  Serious: Yes (Other)
  Sender: FDA-Public Use
  Company Number: US-PFIZER INC-2013213583

PATIENT
  Age: 50 Year
  Sex: Female
  Weight: 67.12 kg

DRUGS (6)
  1. LYRICA [Suspect]
     Indication: FIBROMYALGIA
     Dosage: 25 MG, 2X/DAY
     Route: 048
  2. LYRICA [Suspect]
     Dosage: 150 MG, 2X/DAY
     Route: 048
     Dates: end: 201308
  3. NEURONTIN [Suspect]
     Dosage: UNK
  4. CELEBREX [Suspect]
     Indication: FIBROMYALGIA
     Dosage: UNK
  5. XANAX [Concomitant]
     Dosage: UNK
  6. LAMICTAL [Concomitant]
     Dosage: UNK

REACTIONS (3)
  - Transient ischaemic attack [Unknown]
  - Blister [Unknown]
  - Amnesia [Unknown]
